FAERS Safety Report 25118633 (Version 1)
Quarter: 2025Q1

REPORT INFORMATION
  Report Type: Report from Study
  Country: US (occurrence: US)
  Receive Date: 20250325
  Receipt Date: 20250325
  Transmission Date: 20250409
  Serious: Yes (Other)
  Sender: PFIZER
  Company Number: US-PFIZER INC-PV202400166683

PATIENT
  Age: 74 Year
  Sex: Female

DRUGS (1)
  1. LORBRENA [Suspect]
     Active Substance: LORLATINIB

REACTIONS (8)
  - Haemoglobin decreased [Unknown]
  - Myalgia [Unknown]
  - Blood cholesterol increased [Unknown]
  - Blood pressure increased [Unknown]
  - Weight increased [Unknown]
  - Memory impairment [Unknown]
  - Hypoaesthesia [Unknown]
  - Oedema [Unknown]
